FAERS Safety Report 7618667-3 (Version None)
Quarter: 2011Q3

REPORT INFORMATION
  Report Type: 
  Country: None (occurrence: None)
  Receive Date: 20110718
  Receipt Date: 20110711
  Transmission Date: 20111222
  Serious: Yes (Other)
  Sender: FDA-Public Use
  Company Number: US-CEPHALON-2011003685

PATIENT
  Sex: Male
  Weight: 127 kg

DRUGS (2)
  1. NUVIGIL [Suspect]
     Indication: HYPERSOMNIA
     Route: 048
     Dates: start: 20110601, end: 20110711
  2. LISINOPRIL [Concomitant]
     Indication: BLOOD PRESSURE

REACTIONS (1)
  - AMNESIA [None]
